FAERS Safety Report 7313700-0 (Version None)
Quarter: 2011Q1

REPORT INFORMATION
  Report Type: 
  Country: None (occurrence: None)
  Receive Date: 20110225
  Receipt Date: 20110214
  Transmission Date: 20110831
  Serious: No
  Sender: FDA-Public Use
  Company Number: US-ELI_LILLY_AND_COMPANY-US201101005635

PATIENT
  Sex: Female

DRUGS (6)
  1. CLINDAMYCIN [Concomitant]
  2. ZYPREXA ZYDIS [Suspect]
     Indication: SCHIZOPHRENIA
     Dosage: 10 MG, 3/D
  3. MAGNESIUM [Concomitant]
  4. ZYPREXA RELPREVV [Suspect]
     Indication: SCHIZOPHRENIA
     Dosage: 210 MG, MONTHLY (1/M)
  5. BUSPIRONE [Concomitant]
  6. LACTULOSE [Concomitant]

REACTIONS (2)
  - OVERDOSE [None]
  - HERNIA [None]
